FAERS Safety Report 7292444-8 (Version None)
Quarter: 2011Q1

REPORT INFORMATION
  Report Type: 
  Country: None (occurrence: None)
  Receive Date: 20110215
  Receipt Date: 20110211
  Transmission Date: 20110831
  Serious: Yes (Other)
  Sender: FDA-Public Use
  Company Number: US-PFIZER INC-2010153413

PATIENT
  Sex: Female

DRUGS (6)
  1. CHANTIX [Suspect]
     Indication: SMOKING CESSATION THERAPY
     Dosage: 0.5 MG, UNK
     Dates: start: 20081201, end: 20090101
  2. OXYCODONE [Concomitant]
     Indication: BACK PAIN
     Dosage: UNK
     Dates: start: 20080101
  3. CHANTIX [Suspect]
     Dosage: 1 MG, UNK
     Dates: start: 20090501, end: 20090801
  4. GABAPENTIN [Concomitant]
     Indication: NEURALGIA
     Dosage: UNK
     Dates: start: 20080101
  5. ZOLOFT [Concomitant]
     Indication: ANXIETY
  6. ZOLOFT [Concomitant]
     Indication: DEPRESSION
     Dosage: UNK
     Dates: start: 20000101

REACTIONS (6)
  - SUICIDAL IDEATION [None]
  - LOSS OF CONSCIOUSNESS [None]
  - AMNESIA [None]
  - ANXIETY [None]
  - AGGRESSION [None]
  - DEPRESSION [None]
